FAERS Safety Report 5102045-5 (Version None)
Quarter: 2006Q3

REPORT INFORMATION
  Report Type: 
  Country: None (occurrence: None)
  Receive Date: 20060907
  Receipt Date: 20060828
  Transmission Date: 20061208
  Serious: Yes (Hospitalization, Other)
  Sender: FDA-Public Use
  Company Number: 2006104880

PATIENT
  Age: 59 Year
  Sex: Female
  Weight: 114.76 kg

DRUGS (1)
  1. LIPITOR [Suspect]
     Indication: DRUG USE FOR UNKNOWN INDICATION

REACTIONS (2)
  - ASTHMA [None]
  - DIABETES MELLITUS INADEQUATE CONTROL [None]
